FAERS Safety Report 5440785-9 (Version None)
Quarter: 2007Q3

REPORT INFORMATION
  Report Type: 
  Country: None (occurrence: None)
  Receive Date: 20070831
  Receipt Date: 20070821
  Transmission Date: 20080115
  Serious: Yes (Hospitalization)
  Sender: FDA-Public Use
  Company Number: PHBS2007JP14143

PATIENT
  Age: 66 Year
  Sex: Female
  Weight: 59.2 kg

DRUGS (3)
  1. METYRAPONE [Suspect]
     Indication: PITUITARY-DEPENDENT CUSHING'S SYNDROME
     Dosage: 1250 MG/D
     Route: 065
  2. INSULIN [Concomitant]
     Indication: DIABETES MELLITUS
  3. AMLODIPINE [Concomitant]
     Indication: HYPERTENSION
     Dosage: 2.5 MG/D
     Route: 065

REACTIONS (8)
  - BLOOD CORTICOTROPHIN INCREASED [None]
  - CORTISOL FREE URINE INCREASED [None]
  - CUSHINGOID [None]
  - HYPERADRENALISM [None]
  - HYPERTENSION [None]
  - PITUITARY TUMOUR BENIGN [None]
  - PITUITARY TUMOUR REMOVAL [None]
  - PITUITARY-DEPENDENT CUSHING'S SYNDROME [None]
